FAERS Safety Report 16078985 (Version 1)
Quarter: 2019Q1

REPORT INFORMATION
  Report Type: Spontaneous
  Country: US (occurrence: US)
  Receive Date: 20190315
  Receipt Date: 20190315
  Transmission Date: 20190418
  Serious: Yes (Hospitalization)
  Sender: FDA-Public Use
  Company Number: US-MYLANLABS-2019M1024001

PATIENT
  Age: 52 Year
  Sex: Male

DRUGS (5)
  1. PENTOSTATIN. [Suspect]
     Active Substance: PENTOSTATIN
     Indication: HAIRY CELL LEUKAEMIA
     Dosage: 4 MILLIGRAM/SQ. METER
     Route: 065
  2. VEMURAFENIB. [Concomitant]
     Active Substance: VEMURAFENIB
     Indication: HAIRY CELL LEUKAEMIA
     Dosage: 240 MILLIGRAM
     Route: 048
  3. PENTOSTATIN. [Suspect]
     Active Substance: PENTOSTATIN
     Dosage: 2 MILLIGRAM/SQ. METER
     Route: 065
  4. FILGRASTIM [Concomitant]
     Active Substance: FILGRASTIM
     Indication: PRODUCT USED FOR UNKNOWN INDICATION
     Dosage: 480 MICROGRAM, QD
     Route: 058
  5. VEMURAFENIB. [Concomitant]
     Active Substance: VEMURAFENIB
     Dosage: 480 MILLIGRAM
     Route: 048

REACTIONS (3)
  - Sepsis [Unknown]
  - Cholecystitis acute [Recovering/Resolving]
  - Neutropenia [Recovered/Resolved]
